FAERS Safety Report 16475278 (Version 1)
Quarter: 2019Q2

REPORT INFORMATION
  Report Type: Spontaneous
  Country: US (occurrence: US)
  Receive Date: 20190625
  Receipt Date: 20190625
  Transmission Date: 20190711
  Serious: No
  Sender: FDA-Public Use
  Company Number: US-SA-2019SA168266

PATIENT
  Sex: Male

DRUGS (2)
  1. AUBAGIO [Suspect]
     Active Substance: TERIFLUNOMIDE
     Dosage: UNK
  2. REBIF [Concomitant]
     Active Substance: INTERFERON BETA-1A

REACTIONS (3)
  - Jaundice [Unknown]
  - Depression [Unknown]
  - Fatigue [Unknown]
